FAERS Safety Report 9481852 (Version 2)
Quarter: 2013Q3

REPORT INFORMATION
  Report Type: Spontaneous
  Country: US (occurrence: US)
  Receive Date: 20130828
  Receipt Date: 20130828
  Transmission Date: 20140515
  Serious: Yes (Hospitalization, Other)
  Sender: FDA-Public Use
  Company Number: US-AMGEN-KDL169588

PATIENT
  Age: 48 Year
  Sex: Female

DRUGS (2)
  1. ENBREL [Suspect]
     Indication: PSORIATIC ARTHROPATHY
     Dosage: 50 MG, QWK
     Route: 058
     Dates: start: 20040708
  2. ENBREL [Suspect]
     Indication: PSORIASIS
     Dosage: 50 MG, QWK
     Route: 058
     Dates: start: 20040708

REACTIONS (20)
  - Hyperplasia [Unknown]
  - Laryngeal dysplasia [Not Recovered/Not Resolved]
  - Myocardial infarction [Unknown]
  - Pulmonary embolism [Unknown]
  - White blood cell count increased [Not Recovered/Not Resolved]
  - Inguinal hernia [Recovered/Resolved]
  - Psoriasis [Not Recovered/Not Resolved]
  - Vitreous floaters [Not Recovered/Not Resolved]
  - Visual acuity reduced [Unknown]
  - Staphylococcal infection [Unknown]
  - Wound [Unknown]
  - Sinus disorder [Unknown]
  - Hepatitis C [Unknown]
  - Psoriatic arthropathy [Unknown]
  - Ovarian neoplasm [Unknown]
  - Thyroid neoplasm [Unknown]
  - Weight increased [Unknown]
  - Insomnia [Unknown]
  - Asthma [Unknown]
  - Bedridden [Unknown]
